FAERS Safety Report 4656138-7 (Version None)
Quarter: 2005Q2

REPORT INFORMATION
  Report Type: 
  Country: None (occurrence: None)
  Receive Date: 20050509
  Receipt Date: 20050127
  Transmission Date: 20051028
  Serious: Yes (Other)
  Sender: FDA-Public Use
  Company Number: FR-ROCHE-393790

PATIENT
  Age: 27 Year
  Sex: Male
  Weight: 85 kg

DRUGS (3)
  1. SAQUINAVIR [Suspect]
     Route: 048
     Dates: start: 20050107, end: 20050124
  2. RITONAVIR [Suspect]
     Route: 048
     Dates: start: 20050107, end: 20050124
  3. RIFAMPICIN [Suspect]
     Route: 048
     Dates: start: 20050121, end: 20050124

REACTIONS (2)
  - HEPATOMEGALY [None]
  - TRANSAMINASES INCREASED [None]
